FAERS Safety Report 25983131 (Version 1)
Quarter: 2025Q4

REPORT INFORMATION
  Report Type: Spontaneous
  Country: US (occurrence: US)
  Receive Date: 20251031
  Receipt Date: 20251031
  Transmission Date: 20260118
  Serious: No
  Sender: BIONPHARMA
  Company Number: US-Bion-015291

PATIENT
  Age: 63 Year
  Sex: Female

DRUGS (1)
  1. LOPERAMIDE HYDROCHLORIDE [Suspect]
     Active Substance: LOPERAMIDE HYDROCHLORIDE
     Indication: Faeces discoloured
     Dosage: TWO SOFTGELS TODAY
     Route: 048
     Dates: start: 20251021

REACTIONS (1)
  - Product use in unapproved indication [Unknown]
